FAERS Safety Report 8082058-4 (Version None)
Quarter: 2012Q1

REPORT INFORMATION
  Report Type: 
  Country: None (occurrence: None)
  Receive Date: 20120127
  Receipt Date: 20110224
  Transmission Date: 20120608
  Serious: No
  Sender: FDA-Public Use
  Company Number: US-ABBOTT-11P-163-0707781-00

PATIENT
  Sex: Female
  Weight: 98.518 kg

DRUGS (2)
  1. TOPICAL CLOBEX [Concomitant]
     Indication: PSORIASIS
  2. HUMIRA [Suspect]
     Indication: PSORIASIS
     Dosage: LOADING DOSE
     Dates: start: 20110223, end: 20110223

REACTIONS (5)
  - DIZZINESS [None]
  - HYPERTENSION [None]
  - PULSE PRESSURE INCREASED [None]
  - CHOKING SENSATION [None]
  - FLUSHING [None]
